FAERS Safety Report 24762490 (Version 1)
Quarter: 2024Q4

REPORT INFORMATION
  Report Type: Spontaneous
  Country: ES (occurrence: ES)
  Receive Date: 20241221
  Receipt Date: 20241221
  Transmission Date: 20250115
  Serious: Yes (Hospitalization)
  Sender: TEVA
  Company Number: None

PATIENT
  Age: 86 Year
  Sex: Male

DRUGS (3)
  1. PAROXETINE [Interacting]
     Active Substance: PAROXETINE
     Indication: Depression
     Route: 048
     Dates: start: 20240721, end: 20240802
  2. PAROXETINE [Interacting]
     Active Substance: PAROXETINE
     Indication: Depression
     Dosage: PAROXETINE (2586A)
     Route: 048
     Dates: start: 2024, end: 20240720
  3. HYDROCHLOROTHIAZIDE\VALSARTAN [Interacting]
     Active Substance: HYDROCHLOROTHIAZIDE\VALSARTAN
     Indication: Hypertension
     Dosage: 160 MG/12.5 MG
     Route: 048
     Dates: start: 20221118, end: 20240802

REACTIONS (1)
  - Hyponatraemia [Recovered/Resolved]

NARRATIVE: CASE EVENT DATE: 20240721
